FAERS Safety Report 9122944 (Version 1)
Quarter: 2013Q1

REPORT INFORMATION
  Report Type: Spontaneous
  Country: US (occurrence: US)
  Receive Date: 20130227
  Receipt Date: 20130227
  Transmission Date: 20140127
  Serious: No
  Sender: FDA-Public Use
  Company Number: US-GLAXOSMITHKLINE-A0993876A

PATIENT
  Age: 87 Year
  Sex: Female

DRUGS (3)
  1. VALTREX [Suspect]
     Indication: SKIN DISORDER
     Dosage: 500MG SEE DOSAGE TEXT
     Route: 048
  2. PLAVIX [Concomitant]
  3. HYDROCODONE [Concomitant]

REACTIONS (2)
  - Drug ineffective [Not Recovered/Not Resolved]
  - Product quality issue [Unknown]
